FAERS Safety Report 8203630-4 (Version None)
Quarter: 2012Q1

REPORT INFORMATION
  Report Type: 
  Country: None (occurrence: None)
  Receive Date: 20120313
  Receipt Date: 20120227
  Transmission Date: 20120608
  Serious: Yes (Other)
  Sender: FDA-Public Use
  Company Number: FR-AMGEN-FRASP2011005628

PATIENT
  Age: 72 Year
  Sex: Female

DRUGS (4)
  1. METHOTREXATE [Concomitant]
     Dosage: UNK
  2. PREDNISONE TAB [Concomitant]
     Indication: RHEUMATOID ARTHRITIS
     Dosage: 7.5 MG, QD
     Route: 048
  3. METHOTREXATE [Concomitant]
     Dosage: 10 MG, QWK
  4. ENBREL [Suspect]
     Indication: RHEUMATOID ARTHRITIS
     Dosage: 50 MG, WEEKLY
     Route: 058
     Dates: start: 20050101

REACTIONS (14)
  - DISORIENTATION [None]
  - NEUROPSYCHIATRIC SYNDROME [None]
  - WEIGHT DECREASED [None]
  - COGNITIVE DISORDER [None]
  - AMNESIA [None]
  - HYPERSOMNIA [None]
  - DELUSION [None]
  - APATHY [None]
  - CEREBROVASCULAR DISORDER [None]
  - GENERAL PHYSICAL HEALTH DETERIORATION [None]
  - ANTEROGRADE AMNESIA [None]
  - NERVOUS SYSTEM DISORDER [None]
  - PROGRESSIVE MULTIFOCAL LEUKOENCEPHALOPATHY [None]
  - FRONTOTEMPORAL DEMENTIA [None]
